FAERS Safety Report 8846480 (Version 3)
Quarter: 2013Q1

REPORT INFORMATION
  Report Type: Report from Study
  Country: DE (occurrence: DE)
  Receive Date: 20121017
  Receipt Date: 20130117
  Transmission Date: 20140127
  Serious: Yes (Death)
  Sender: FDA-Public Use
  Company Number: DE-ROCHE-1145958

PATIENT
  Age: 69 Year
  Sex: Female
  Weight: 83 kg

DRUGS (8)
  1. TOCILIZUMAB [Suspect]
     Indication: RHEUMATOID ARTHRITIS
     Route: 065
  2. PREDNISONE [Concomitant]
     Route: 048
  3. PREDNISOLON [Concomitant]
     Route: 048
  4. GABAPENTIN [Concomitant]
     Route: 048
  5. AMLODIPIN [Concomitant]
     Route: 048
  6. BISOPROLOL [Concomitant]
     Route: 048
  7. ASS [Concomitant]
     Route: 048
  8. FUROSEMIDE [Concomitant]
     Route: 048

REACTIONS (4)
  - Renal failure [Fatal]
  - Sepsis [Fatal]
  - Pneumonia [Fatal]
  - Right ventricular failure [Fatal]
